FAERS Safety Report 9293177 (Version 1)
Quarter: 2013Q2

REPORT INFORMATION
  Report Type: Spontaneous
  Country: US (occurrence: US)
  Receive Date: 20130516
  Receipt Date: 20130516
  Transmission Date: 20140414
  Serious: Yes (Hospitalization, Other)
  Sender: FDA-Public Use
  Company Number: PHHY2013US047117

PATIENT
  Age: 14 Year
  Sex: Male

DRUGS (10)
  1. TACROLIMUS [Suspect]
     Indication: IMMUNOSUPPRESSION
     Dosage: 4 MG, UNK
  2. TACROLIMUS [Interacting]
     Dosage: 2.99 MG, UNK
  3. TACROLIMUS [Interacting]
     Dosage: 2.64 MG, UNK
  4. RIFAMPICIN [Interacting]
     Indication: TUBERCULOSIS
     Dosage: 10 MG/KG, UNK
  5. VANCOMYCIN [Suspect]
  6. KETOCONAZOLE [Suspect]
  7. RIFABUTIN [Interacting]
     Indication: TUBERCULOSIS
  8. MYCOPHENOLATE MOFETIL [Concomitant]
     Indication: IMMUNOSUPPRESSION
  9. METHYLPREDNISOLONE [Concomitant]
     Indication: IMMUNOSUPPRESSION
  10. PREDNISONE [Concomitant]
     Indication: TRANSPLANT REJECTION

REACTIONS (14)
  - Renal failure acute [Recovered/Resolved]
  - Renal tubular necrosis [Recovered/Resolved]
  - Drug level below therapeutic [Recovered/Resolved]
  - Hyperkalaemia [Recovered/Resolved]
  - Electrocardiogram QT prolonged [Recovered/Resolved]
  - Pyrexia [Recovered/Resolved]
  - Leukocytosis [Recovered/Resolved]
  - Lung consolidation [Recovered/Resolved]
  - Pleural effusion [Recovered/Resolved]
  - Pneumonia [Recovered/Resolved]
  - Transplant rejection [Recovered/Resolved]
  - Blood creatinine increased [Recovered/Resolved]
  - Toxicity to various agents [Recovered/Resolved]
  - Drug interaction [Recovered/Resolved]
